FAERS Safety Report 23685520 (Version 2)
Quarter: 2024Q1

REPORT INFORMATION
  Report Type: Spontaneous
  Country: IT (occurrence: IT)
  Receive Date: 20240329
  Receipt Date: 20240331
  Transmission Date: 20240410
  Serious: Yes (Hospitalization)
  Sender: FDA-Public Use
  Company Number: IT-JNJFOC-20240362256

PATIENT

DRUGS (1)
  1. RISPERDAL [Suspect]
     Active Substance: RISPERIDONE
     Indication: Product used for unknown indication
     Dosage: DOSE: UNKNOWN
     Route: 048

REACTIONS (23)
  - Hallucination [Recovered/Resolved]
  - Electrocardiogram QT prolonged [Recovered/Resolved]
  - Dystonia [Recovered/Resolved]
  - Syncope [Recovered/Resolved]
  - Seizure [Recovered/Resolved]
  - Loss of consciousness [Recovered/Resolved]
  - Sedation [Recovered/Resolved]
  - Somnolence [Recovered/Resolved]
  - Dysarthria [Recovered/Resolved]
  - Dyskinesia [Recovered/Resolved]
  - Tachycardia [Recovered/Resolved]
  - Hypotension [Recovered/Resolved]
  - Vomiting [Recovered/Resolved]
  - Gait disturbance [Recovered/Resolved]
  - Agitation [Recovered/Resolved]
  - Salivary hypersecretion [Recovered/Resolved]
  - Hypertonia [Recovered/Resolved]
  - Tremor [Recovered/Resolved]
  - Asthenia [Recovered/Resolved]
  - Sluggishness [Recovered/Resolved]
  - Product dispensing error [Unknown]
  - Device use issue [Unknown]
  - Device issue [Unknown]
